FAERS Safety Report 12980787 (Version 1)
Quarter: 2016Q4

REPORT INFORMATION
  Report Type: Spontaneous
  Country: US (occurrence: US)
  Receive Date: 20161128
  Receipt Date: 20161128
  Transmission Date: 20170207
  Serious: No
  Sender: FDA-Public Use
  Company Number: US-PFIZER INC-2016548490

PATIENT
  Sex: Female

DRUGS (1)
  1. XELJANZ [Suspect]
     Active Substance: TOFACITINIB CITRATE
     Dosage: 5 MG, UNK

REACTIONS (15)
  - Feeling hot [Unknown]
  - Arthralgia [Unknown]
  - Swelling [Unknown]
  - Cough [Unknown]
  - Headache [Unknown]
  - Paraesthesia [Unknown]
  - Tenderness [Unknown]
  - Photosensitivity reaction [Unknown]
  - Fatigue [Unknown]
  - Condition aggravated [Unknown]
  - Hypoaesthesia [Unknown]
  - Alopecia [Unknown]
  - Dry eye [Unknown]
  - Dry mouth [Unknown]
  - Musculoskeletal stiffness [Unknown]
